FAERS Safety Report 6311185-4 (Version None)
Quarter: 2009Q3

REPORT INFORMATION
  Report Type: 
  Country: None (occurrence: None)
  Receive Date: 20090812
  Receipt Date: 20090730
  Transmission Date: 20100115
  Serious: Yes (Death, Life-Threatening)
  Sender: FDA-Public Use
  Company Number: 1000007531

PATIENT
  Age: 72 Year
  Sex: Male

DRUGS (7)
  1. ESCITALOPRAM (ESCITALOPRAM OXALATE) (10 MILLIGRAM, TABLETS) [Suspect]
     Indication: DEPRESSION
     Dosage: 60 MG,ONCE),ORAL;  10 MG (10 MG, 1 IN 1 D),ORAL
     Route: 048
     Dates: start: 20090626, end: 20090706
  2. ESCITALOPRAM (ESCITALOPRAM OXALATE) (10 MILLIGRAM, TABLETS) [Suspect]
     Indication: DEPRESSION
     Dosage: 60 MG,ONCE),ORAL;  10 MG (10 MG, 1 IN 1 D),ORAL
     Route: 048
     Dates: start: 20090706, end: 20090706
  3. PLAVIX [Concomitant]
  4. CORDARONE [Concomitant]
  5. TRIATEC [Concomitant]
  6. OMNIC [Concomitant]
  7. DORMICUM [Concomitant]

REACTIONS (13)
  - ABNORMAL BEHAVIOUR [None]
  - ARRHYTHMIA [None]
  - CARDIO-RESPIRATORY ARREST [None]
  - CEREBRAL ARTERY EMBOLISM [None]
  - COMPLETED SUICIDE [None]
  - CONVULSION [None]
  - DELIRIUM [None]
  - HAEMATEMESIS [None]
  - HALLUCINATION, VISUAL [None]
  - INTENTIONAL OVERDOSE [None]
  - LOSS OF CONSCIOUSNESS [None]
  - PSYCHOMOTOR HYPERACTIVITY [None]
  - PULMONARY EMBOLISM [None]
